FAERS Safety Report 9611878 (Version 2)
Quarter: 2013Q4

REPORT INFORMATION
  Report Type: Spontaneous
  Country: CL (occurrence: CL)
  Receive Date: 20131010
  Receipt Date: 20131016
  Transmission Date: 20140711
  Serious: Yes (Other)
  Sender: FDA-Public Use
  Company Number: CL-JNJFOC-20131004248

PATIENT
  Age: 78 Year
  Sex: Female
  Weight: 54 kg

DRUGS (7)
  1. SIMPONI [Suspect]
     Indication: RHEUMATOID ARTHRITIS
     Route: 058
     Dates: start: 20130201
  2. SALBUTAMOL [Concomitant]
     Route: 065
  3. SALMETEROL [Concomitant]
     Route: 065
  4. CLAVINEX [Concomitant]
     Route: 065
  5. NASONEX [Concomitant]
     Route: 065
  6. AERIUS [Concomitant]
     Route: 065
  7. PREDNISONE [Concomitant]
     Route: 065

REACTIONS (1)
  - Asthmatic crisis [Not Recovered/Not Resolved]
